FAERS Safety Report 9364712 (Version 2)
Quarter: 2013Q3

REPORT INFORMATION
  Report Type: Spontaneous
  Country: FI (occurrence: FI)
  Receive Date: 20130624
  Receipt Date: 20130724
  Transmission Date: 20140515
  Serious: Yes (Hospitalization, Other)
  Sender: FDA-Public Use
  Company Number: FI-B.I. PHARMACEUTICALS,INC./RIDGEFIELD-2013-SW-00333SF

PATIENT
  Age: 63 Year
  Sex: Male

DRUGS (10)
  1. PRADAXA [Suspect]
     Indication: ATRIAL FIBRILLATION
     Dosage: 300 MG
     Route: 048
     Dates: start: 20130327, end: 20130517
  2. KETEK [Concomitant]
     Indication: PNEUMONIA
     Dosage: 800 MG
     Route: 048
     Dates: start: 20130327
  3. NEXIUM [Concomitant]
     Dosage: 20 MG
     Route: 048
     Dates: start: 20120625
  4. RAMIPRIL [Concomitant]
     Indication: HYPERTENSION
     Dosage: 7.5 MG
     Route: 048
     Dates: start: 20120404
  5. BISOPROLOL [Concomitant]
     Indication: ATRIAL FIBRILLATION
     Dosage: 2.5 MG
     Route: 048
     Dates: start: 20130327
  6. APURIN [Concomitant]
     Indication: GOUT
     Dosage: 300 MG
     Route: 048
     Dates: start: 20100627
  7. FLIXOTIDE [Concomitant]
     Indication: CHRONIC OBSTRUCTIVE PULMONARY DISEASE
     Dosage: 1000 MCG
     Route: 055
  8. SERETIDE [Concomitant]
     Dates: start: 201201
  9. ERDOPECT [Concomitant]
     Indication: INCREASED UPPER AIRWAY SECRETION
     Dosage: 600 MG
     Route: 048
     Dates: start: 20130425
  10. REVITELLE [Concomitant]
     Indication: HYPERSENSITIVITY
     Dosage: 20 MG
     Route: 048
     Dates: start: 20130425

REACTIONS (9)
  - Renal failure acute [Not Recovered/Not Resolved]
  - Haematemesis [Unknown]
  - Tubulointerstitial nephritis [Not Recovered/Not Resolved]
  - Epistaxis [Unknown]
  - Haemoglobin decreased [Not Recovered/Not Resolved]
  - Hypersensitivity [Not Recovered/Not Resolved]
  - Melaena [Unknown]
  - Chest pain [Unknown]
  - Gastrooesophageal reflux disease [Unknown]
